FAERS Safety Report 12587867 (Version 1)
Quarter: 2016Q3

REPORT INFORMATION
  Report Type: Report from Study
  Country: IL (occurrence: IL)
  Receive Date: 20160725
  Receipt Date: 20160725
  Transmission Date: 20161109
  Serious: Yes (Hospitalization)
  Sender: FDA-Public Use
  Company Number: IL-NOVOPROD-494405

PATIENT
  Age: 55 Year
  Sex: Male

DRUGS (2)
  1. NOVORAPID [Suspect]
     Active Substance: INSULIN ASPART
     Indication: DIABETES MELLITUS
     Dosage: UNK
     Route: 065
  2. LEVEMIR [Suspect]
     Active Substance: INSULIN DETEMIR
     Indication: DIABETES MELLITUS
     Dosage: 50 U, QD (AT NIGHT)
     Route: 058

REACTIONS (5)
  - Generalised oedema [Unknown]
  - Glycosylated haemoglobin increased [Recovered/Resolved]
  - Lung disorder [Unknown]
  - Blood glucose abnormal [Recovered/Resolved]
  - Drug ineffective [Unknown]
